FAERS Safety Report 5535244-9 (Version None)
Quarter: 2007Q4

REPORT INFORMATION
  Report Type: 
  Country: None (occurrence: None)
  Receive Date: 20071206
  Receipt Date: 20071203
  Transmission Date: 20080405
  Serious: Yes (Other)
  Sender: FDA-Public Use
  Company Number: US-BRISTOL-MYERS SQUIBB COMPANY-14002414

PATIENT
  Age: 48 Year
  Sex: Female

DRUGS (6)
  1. PACLITAXEL [Suspect]
     Indication: BREAST CANCER
  2. DOXORUBICIN HCL [Suspect]
  3. CYCLOPHOSPHAMIDE [Suspect]
  4. CYCLOPHOSPHAMIDE [Suspect]
  5. VINORELBINE [Suspect]
     Dosage: INITIAL DOSE WAS 25 MG/M2, INCREASED TO 30 MG/M2, FINALLY REDUCED TO 25 MG/M2
  6. CAPECITABINE [Suspect]

REACTIONS (5)
  - HYPERAESTHESIA [None]
  - MALIGNANT NEOPLASM PROGRESSION [None]
  - MUSCULOSKELETAL PAIN [None]
  - PARAESTHESIA [None]
  - VOCAL CORD PARALYSIS [None]
